FAERS Safety Report 7681192-8 (Version None)
Quarter: 2011Q3

REPORT INFORMATION
  Report Type: 
  Country: None (occurrence: None)
  Receive Date: 20110812
  Receipt Date: 20110801
  Transmission Date: 20111222
  Serious: Yes (Hospitalization)
  Sender: FDA-Public Use
  Company Number: FR-SANOFI-AVENTIS-2011SA048936

PATIENT
  Age: 89 Year
  Sex: Female

DRUGS (11)
  1. TRIMETAZIDINE HYDROCHLORIDE [Suspect]
     Route: 048
     Dates: end: 20110616
  2. TRAMADOL HCL [Suspect]
     Route: 048
     Dates: end: 20110616
  3. SERETIDE DISKUS [Concomitant]
     Route: 065
  4. TRIMEBUTINE [Concomitant]
     Route: 065
  5. ISOSORBIDE DINITRATE [Suspect]
     Route: 048
     Dates: end: 20110616
  6. NITRODERM [Suspect]
     Route: 062
     Dates: end: 20110617
  7. ACETAMINOPHEN [Concomitant]
     Route: 065
  8. LASIX [Suspect]
     Route: 048
     Dates: end: 20110616
  9. ESCITALOPRAM OXALATE [Suspect]
     Route: 048
     Dates: start: 20110615
  10. LEXOMIL [Concomitant]
     Route: 065
  11. IPRATROPIUM BROMIDE [Concomitant]
     Route: 065

REACTIONS (2)
  - FALL [None]
  - VERTIGO [None]
